FAERS Safety Report 4960975-9 (Version None)
Quarter: 2006Q1

REPORT INFORMATION
  Report Type: 
  Country: None (occurrence: None)
  Receive Date: 20060130
  Receipt Date: 20050615
  Transmission Date: 20060701
  Serious: Yes (Other)
  Sender: FDA-Public Use
  Company Number: 142371USA

PATIENT
  Age: 39 Year
  Sex: Female
  Weight: 63.9572 kg

DRUGS (3)
  1. COPAXONE [Suspect]
     Indication: MULTIPLE SCLEROSIS
     Dates: start: 20010517
  2. MOBIC [Concomitant]
  3. BEXTRA [Concomitant]

REACTIONS (1)
  - INJECTION SITE CELLULITIS [None]
